FAERS Safety Report 18197991 (Version 5)
Quarter: 2020Q4

REPORT INFORMATION
  Report Type: Spontaneous
  Country: FR (occurrence: FR)
  Receive Date: 20200826
  Receipt Date: 20201109
  Transmission Date: 20210113
  Serious: Yes (Disabling, Other)
  Sender: FDA-Public Use
  Company Number: NVSC2020FR018058

PATIENT
  Age: 63 Year
  Sex: Female

DRUGS (1)
  1. IMATINIB. [Suspect]
     Active Substance: IMATINIB MESYLATE
     Indication: GASTROINTESTINAL STROMAL TUMOUR
     Dosage: 400 MG, QD
     Route: 065

REACTIONS (9)
  - Off label use [Unknown]
  - Bone marrow oedema [Recovered/Resolved]
  - Gait disturbance [Recovered/Resolved]
  - Erythrocyanosis [Recovered/Resolved]
  - Arthralgia [Recovered/Resolved]
  - Complex regional pain syndrome [Recovered/Resolved]
  - Joint swelling [Recovered/Resolved]
  - Effusion [Recovered/Resolved]
  - Decreased activity [Recovered/Resolved]
